FAERS Safety Report 21251642 (Version 2)
Quarter: 2022Q4

REPORT INFORMATION
  Report Type: Report from Study
  Country: IN (occurrence: IN)
  Receive Date: 20220825
  Receipt Date: 20221110
  Transmission Date: 20230112
  Serious: Yes (Other)
  Sender: FDA-Public Use
  Company Number: IN-NOVARTISPH-NVSC2022IN186360

PATIENT
  Sex: Male

DRUGS (10)
  1. SECUKINUMAB [Suspect]
     Active Substance: SECUKINUMAB
     Indication: Psoriasis
     Dosage: 150 MG, ONCE EVERY 6 WEEKS
     Route: 058
  2. SECUKINUMAB [Suspect]
     Active Substance: SECUKINUMAB
     Indication: Psoriatic arthropathy
     Dosage: 150 MG 6 TO 8 WEEKLY
     Route: 058
  3. METHOTREXATE SODIUM [Concomitant]
     Active Substance: METHOTREXATE SODIUM
     Indication: Product used for unknown indication
     Dosage: UNK (SATURDAY ONLY)
     Route: 065
  4. ROSUVAS F [Concomitant]
     Indication: Product used for unknown indication
     Dosage: 1 DOSAGE FORM, QD
     Route: 065
  5. NEBICARD-SM [Concomitant]
     Indication: Product used for unknown indication
     Dosage: UNK, QD
     Route: 065
  6. TELMA-H [Concomitant]
     Indication: Product used for unknown indication
     Dosage: UNK
     Route: 065
  7. FOLVITE [Concomitant]
     Active Substance: FOLIC ACID
     Indication: Product used for unknown indication
     Dosage: UNK
     Route: 065
  8. SULFASALAZINE [Concomitant]
     Active Substance: SULFASALAZINE
     Indication: Product used for unknown indication
     Dosage: 1 UNK, BID (500)
     Route: 065
  9. SIBELIUM [Concomitant]
     Indication: Product used for unknown indication
     Dosage: UNK (10)
     Route: 065
  10. PANTOPRAZOLE SODIUM [Concomitant]
     Active Substance: PANTOPRAZOLE SODIUM
     Indication: Product used for unknown indication
     Dosage: UNK (40) (SOS)
     Route: 065

REACTIONS (13)
  - Type 2 diabetes mellitus [Unknown]
  - Hypertension [Unknown]
  - Migraine [Unknown]
  - Bundle branch block right [Unknown]
  - Dyslipidaemia [Unknown]
  - Musculoskeletal stiffness [Unknown]
  - Arthralgia [Unknown]
  - Osteoporosis [Unknown]
  - Skin lesion [Unknown]
  - Iritis [Unknown]
  - Groin pain [Unknown]
  - HLA-B*27 positive [Unknown]
  - Inappropriate schedule of product administration [Unknown]
